FAERS Safety Report 13081664 (Version 4)
Quarter: 2017Q1

REPORT INFORMATION
  Report Type: Spontaneous
  Country: US (occurrence: US)
  Receive Date: 20170103
  Receipt Date: 20170307
  Transmission Date: 20170428
  Serious: Yes (Hospitalization, Other)
  Sender: FDA-Public Use
  Company Number: US-PFIZER INC-2016601843

PATIENT
  Age: 67 Year
  Sex: Female

DRUGS (62)
  1. NORCO [Concomitant]
     Active Substance: ACETAMINOPHEN\HYDROCODONE BITARTRATE
     Indication: PAIN
     Dosage: UNK, AS NEEDED [HYDROCODONE BITARTRATE: 10MG/PARACETAMOL: 325MG] (1 OR 2 Q 6 HOURS )
     Dates: start: 20160329
  2. FETZIMA [Concomitant]
     Active Substance: LEVOMILNACIPRAN HYDROCHLORIDE
     Dosage: 40 MG, DAILY
     Route: 048
     Dates: start: 20161116
  3. SODIUM BICARBONATE. [Concomitant]
     Active Substance: SODIUM BICARBONATE
     Dosage: 650 MG, UNK (Q.8 HOURS)
     Route: 048
  4. LANTUS [Concomitant]
     Active Substance: INSULIN GLARGINE
     Dosage: 100 IU, 2X/DAY (2 X 1 AM 1BED)
  5. FLEXERIL [Concomitant]
     Active Substance: CYCLOBENZAPRINE HYDROCHLORIDE
     Dosage: 5 MG, AS NEEDED
  6. HYDROCODONE/ACETAMINOPHEN [Concomitant]
     Active Substance: ACETAMINOPHEN\HYDROCODONE
     Indication: PAIN
     Dosage: UNK UNK, AS NEEDED (10/325 Q.6 )
  7. REGLAN [Concomitant]
     Active Substance: METOCLOPRAMIDE HYDROCHLORIDE
     Dosage: 5 MG, 2X/DAY (1 AT MEALS 1 BED)
  8. IRON [Concomitant]
     Active Substance: IRON
     Dosage: 1300 MG, 1X/DAY (2 AM)
  9. LISINOPRIL. [Concomitant]
     Active Substance: LISINOPRIL
     Dosage: 10 MG, DAILY
     Route: 048
  10. METOLAZONE. [Concomitant]
     Active Substance: METOLAZONE
     Dosage: 2.5 MG, ALTERNATE DAY (EOD)
     Dates: start: 20170217
  11. OMEGA-3 FATTY ACIDS [Concomitant]
     Active Substance: OMEGA-3 FATTY ACIDS
     Dosage: UNK
  12. XELJANZ [Suspect]
     Active Substance: TOFACITINIB CITRATE
     Indication: RHEUMATOID ARTHRITIS
     Dosage: 5 MG, 2X/DAY (1 AM, 1PM)
     Route: 048
     Dates: start: 20161117
  13. ASPIRIN. [Concomitant]
     Active Substance: ASPIRIN
     Dosage: UNK, 1X/DAY (1 AM)
  14. TRAZODONE [Concomitant]
     Active Substance: TRAZODONE HYDROCHLORIDE
     Dosage: 50 MG, 1X/DAY (1 BED)
     Route: 048
     Dates: start: 20160523
  15. IRON [Concomitant]
     Active Substance: IRON
     Dosage: 325 MG, 4X/DAY
     Route: 048
     Dates: start: 20170220
  16. POTASSIUM [Concomitant]
     Active Substance: POTASSIUM
     Dosage: UNK UNK, 1X/DAY (0.5 AM /FULL WITH METOLAZONE)
  17. CALCITROL [Concomitant]
     Active Substance: CALCITRIOL
     Dosage: UNK, 1X/DAY (0.25 1 AM)
     Route: 048
     Dates: start: 20170220
  18. PROCRIT [Concomitant]
     Active Substance: ERYTHROPOIETIN
     Dosage: 10000 IU, 2X/WEEK (SHOT EVERY 2 WEEKS)
     Dates: start: 20170217
  19. CYCLOBENZAPRINE [Concomitant]
     Active Substance: CYCLOBENZAPRINE
     Dosage: 10 MG, AS NEEDED ( T.I.D. )
     Route: 048
  20. GABAPENTIN. [Concomitant]
     Active Substance: GABAPENTIN
     Dosage: 300 MG, 1X/DAY (BEDTIME)
     Route: 048
  21. METOCLOPRAMIDE HCL [Concomitant]
     Active Substance: METOCLOPRAMIDE HYDROCHLORIDE
     Dosage: 5 MG, 1X/DAY(MINUTES BEFORE MEALS AND AT BEDTIME)
     Route: 048
     Dates: start: 20170121
  22. LASIX [Concomitant]
     Active Substance: FUROSEMIDE
     Dosage: 80 MG, 3X/DAY (1 AM, 1 LUNCH AM EOD)
  23. IRON [Concomitant]
     Active Substance: IRON
     Dosage: UNK, AS NEEDED (IRON INFUSION)
  24. VITAMIN D3 [Concomitant]
     Active Substance: CHOLECALCIFEROL
     Dosage: 5000 IU, 1X/DAY
     Route: 048
     Dates: start: 20170220
  25. SERTRALINE [Concomitant]
     Active Substance: SERTRALINE HYDROCHLORIDE
     Dosage: 100 MG, DAILY
  26. SERTRALINE [Concomitant]
     Active Substance: SERTRALINE HYDROCHLORIDE
     Dosage: 100 MG, 2X/DAY
     Route: 048
     Dates: start: 20170218
  27. SODIUM BICARBONATE. [Concomitant]
     Active Substance: SODIUM BICARBONATE
     Dosage: 325 MG, 2X/DAY
     Route: 048
     Dates: start: 20170220
  28. VITAMIN B COMPLEX [Concomitant]
     Active Substance: CYANOCOBALAMIN\DEXPANTHENOL\NIACINAMIDE\PYRIDOXINE HYDROCHLORIDE\RIBOFLAVIN 5^-PHOSPHATE SODIUM\THIAMINE HYDROCHLORIDE\VITAMIN B COMPLEX
     Dosage: UNK, 1X/DAY (5000 1 AM)
  29. METOLAZONE. [Concomitant]
     Active Substance: METOLAZONE
     Dosage: 1 DF, 1X/DAY (EVENING)
  30. LACTOBACILLUS [Concomitant]
     Active Substance: LACTOBACILLUS ACIDOPHILUS
     Dosage: UNK
  31. FUROSEMIDE. [Concomitant]
     Active Substance: FUROSEMIDE
     Dosage: 80 MG, 1X/DAY
     Route: 048
  32. FUROSEMIDE. [Concomitant]
     Active Substance: FUROSEMIDE
     Dosage: 80 MG, 2X/DAY
     Route: 048
     Dates: start: 20161128
  33. NOVOLOG [Concomitant]
     Active Substance: INSULIN ASPART
     Dosage: 100 IU/ML, 3X/DAY
     Route: 058
     Dates: start: 20160610
  34. ASPIRIN. [Concomitant]
     Active Substance: ASPIRIN
     Dosage: 81 MG, 1X/DAY
     Route: 048
     Dates: start: 20100304
  35. LISINOPRIL. [Concomitant]
     Active Substance: LISINOPRIL
     Dosage: 20 MG, 1X/DAY [1 AM]
     Dates: start: 20170220
  36. LANTUS [Concomitant]
     Active Substance: INSULIN GLARGINE
     Dosage: 15 UNK, UNK
     Route: 058
  37. MAGNESIUM [Concomitant]
     Active Substance: MAGNESIUM
     Dosage: 400 MG, 1X/DAY (BEDTIME)
     Route: 048
     Dates: start: 20170220
  38. KLOR-CON [Concomitant]
     Active Substance: POTASSIUM CHLORIDE
     Dosage: 20 MEQ, 2X/DAY
     Route: 048
     Dates: start: 20161222
  39. NEXIUM [Concomitant]
     Active Substance: ESOMEPRAZOLE MAGNESIUM
     Dosage: 40 MG, 2X/DAY (1 AM, 1 PM)
     Route: 048
     Dates: start: 20170220
  40. VITAMIN D3 [Concomitant]
     Active Substance: CHOLECALCIFEROL
     Dosage: UNK, 1X/DAY (5000 AM)
  41. PROBIOTIC [Concomitant]
     Active Substance: PROBIOTICS NOS
     Dosage: UNK, 2X/DAY (10 BILLION 1 AM 1 PM)
  42. PEPCID [Concomitant]
     Active Substance: FAMOTIDINE
     Dosage: 100 MG, DAILY
     Route: 048
  43. FERROUS SULFATE. [Concomitant]
     Active Substance: FERROUS SULFATE
     Dosage: 325 MG, UNK
     Route: 048
  44. VITAMIN E [Concomitant]
     Active Substance: .ALPHA.-TOCOPHEROL
     Dosage: 1000 IU, 1X/DAY
     Route: 048
     Dates: start: 20170217
  45. NITROSTAT [Concomitant]
     Active Substance: NITROGLYCERIN
     Dosage: 0.4 MG, UNK (1 PO/SL Q 5 MIN PRN CP X 3 PRN )
     Route: 048
     Dates: start: 20100723
  46. POTASSIUM CITRATE. [Concomitant]
     Active Substance: POTASSIUM CITRATE
     Dosage: 5 MEQ, 1X/DAY
     Route: 048
     Dates: start: 20170220
  47. FISH OIL/OMEGA-3 FATTY ACIDS [Concomitant]
     Dosage: UNK UNK, 2X/DAY
     Dates: start: 20170220
  48. MELATONIN [Concomitant]
     Active Substance: MELATONIN
     Dosage: 3 MG, 1X/DAY (BED)
     Route: 048
     Dates: start: 20170220
  49. HUMALOG [Concomitant]
     Active Substance: INSULIN LISPRO
     Dosage: 100 IU/ML, UNK
     Route: 058
     Dates: start: 20170220
  50. PRENATAL [Concomitant]
     Active Substance: VITAMINS
     Dosage: 800 UG, 1X/DAY (1 AM)
  51. SODIUM BICARBONATE. [Concomitant]
     Active Substance: SODIUM BICARBONATE
     Dosage: 625 MG, UNK
     Route: 048
  52. CYCLOBENZAPRINE [Concomitant]
     Active Substance: CYCLOBENZAPRINE
     Dosage: 10 MG, UNK (Q.8.)
     Route: 048
  53. PEPCID [Concomitant]
     Active Substance: FAMOTIDINE
     Dosage: 40 MG, DAILY
     Route: 048
  54. PROBIOTIC [Concomitant]
     Active Substance: PROBIOTICS NOS
     Dosage: 1 DF, 2X/DAY
     Dates: start: 20170220
  55. LANTUS SOLOSTAR [Concomitant]
     Active Substance: INSULIN GLARGINE
     Dosage: 15 IU/ML, UNK
     Route: 058
     Dates: start: 20160812
  56. FISH OIL [Concomitant]
     Active Substance: FISH OIL
     Dosage: 1200 MG, 2X/DAY (1 AM 1 BED)
  57. SERTRALINE [Concomitant]
     Active Substance: SERTRALINE HYDROCHLORIDE
     Dosage: 200 MG, 1X/DAY (2 AM)
  58. PROBIOTIC [Concomitant]
     Active Substance: PROBIOTICS NOS
     Dosage: 1 DF, DAILY
  59. SODIUM BICARBONATE. [Concomitant]
     Active Substance: SODIUM BICARBONATE
     Dosage: UNK, 2X/DAY (325 1AM 1 BED)
  60. NEURONTIN [Concomitant]
     Active Substance: GABAPENTIN
     Dosage: 900 MG, 1X/DAY (3 AT BED)
     Dates: start: 20170220
  61. INSULIN LISPRO [Concomitant]
     Active Substance: INSULIN LISPRO
     Dosage: UNK
  62. PRALUENT [Concomitant]
     Active Substance: ALIROCUMAB
     Dosage: 75 MG/ML, UNK (ONCE EVERY 2 WEEKS)
     Route: 058
     Dates: start: 20160805

REACTIONS (6)
  - Gastrointestinal haemorrhage [Recovered/Resolved]
  - Condition aggravated [Recovering/Resolving]
  - Rectal haemorrhage [Not Recovered/Not Resolved]
  - Diverticulum [Not Recovered/Not Resolved]
  - Condition aggravated [Recovered/Resolved]
  - Anaemia [Recovering/Resolving]

NARRATIVE: CASE EVENT DATE: 20161206
